FAERS Safety Report 23757359 (Version 1)
Quarter: 2024Q2

REPORT INFORMATION
  Report Type: Spontaneous
  Country: AU (occurrence: AU)
  Receive Date: 20240418
  Receipt Date: 20240418
  Transmission Date: 20240716
  Serious: Yes (Hospitalization)
  Sender: FDA-Public Use
  Company Number: AU-009507513-2404AUS008353

PATIENT
  Age: 64 Year
  Sex: Female

DRUGS (2)
  1. KEYTRUDA [Suspect]
     Active Substance: PEMBROLIZUMAB
     Indication: Non-small cell lung cancer
     Dosage: 200 MILLIGRAM, ONCE
     Route: 042
     Dates: start: 20230119, end: 20230119
  2. ADAGRASIB [Suspect]
     Active Substance: ADAGRASIB
     Indication: Non-small cell lung cancer
     Dosage: 200 MILLIGRAM, BID
     Route: 048
     Dates: start: 20230119, end: 20230130

REACTIONS (1)
  - Oesophageal spasm [Not Recovered/Not Resolved]

NARRATIVE: CASE EVENT DATE: 20230125
